FAERS Safety Report 5011861-X (Version None)
Quarter: 2006Q2

REPORT INFORMATION
  Report Type: 
  Country: None (occurrence: None)
  Receive Date: 20060526
  Receipt Date: 20060518
  Transmission Date: 20061013
  Serious: Yes (Hospitalization)
  Sender: FDA-Public Use
  Company Number: FR-SANOFI-SYNTHELABO-A02200601307

PATIENT
  Age: 73 Year
  Sex: Female
  Weight: 50 kg

DRUGS (12)
  1. OROCAL [Concomitant]
     Route: 048
  2. LEXOMIL [Concomitant]
     Route: 048
  3. ATHYMIL [Concomitant]
     Route: 048
  4. KALEORID [Concomitant]
     Route: 048
  5. MOPRAL [Concomitant]
     Route: 048
  6. SOLUPRED [Concomitant]
     Route: 048
  7. CARDENSIEL [Concomitant]
     Route: 048
  8. ZOCOR [Concomitant]
     Route: 048
  9. DOXYCYCLINE [Concomitant]
     Route: 048
     Dates: start: 20060314
  10. TRIATEC [Suspect]
     Indication: ESSENTIAL HYPERTENSION
     Route: 048
     Dates: end: 20060411
  11. LASILIX [Suspect]
     Indication: ESSENTIAL HYPERTENSION
     Route: 048
     Dates: end: 20060411
  12. PLAQUENIL [Suspect]
     Indication: Q FEVER
     Route: 048
     Dates: start: 20060314, end: 20060411

REACTIONS (2)
  - DIARRHOEA [None]
  - RENAL FAILURE ACUTE [None]
